FAERS Safety Report 25603530 (Version 1)
Quarter: 2025Q3

REPORT INFORMATION
  Report Type: Spontaneous
  Country: CN (occurrence: CN)
  Receive Date: 20250724
  Receipt Date: 20250724
  Transmission Date: 20251020
  Serious: Yes (Hospitalization, Other)
  Sender: BRISTOL-MYERS SQUIBB COMPANY
  Company Number: CN-BRISTOL-MYERS SQUIBB COMPANY-2025-101969

PATIENT
  Age: 57 Year
  Sex: Male

DRUGS (6)
  1. OPDIVO [Suspect]
     Active Substance: NIVOLUMAB
     Indication: Rectal cancer
     Route: 041
     Dates: start: 20250621, end: 20250621
  2. TRIFLURIDINE [Suspect]
     Active Substance: TRIFLURIDINE
     Indication: Rectal cancer
     Route: 048
     Dates: start: 20250621, end: 20250625
  3. TRIFLURIDINE [Suspect]
     Active Substance: TRIFLURIDINE
     Route: 048
     Dates: start: 20250621, end: 20250625
  4. TRIFLURIDINE [Suspect]
     Active Substance: TRIFLURIDINE
     Route: 048
     Dates: start: 20250628, end: 20250702
  5. TRIFLURIDINE [Suspect]
     Active Substance: TRIFLURIDINE
     Route: 048
     Dates: start: 20250628, end: 20250702
  6. FRUQUINTINIB [Suspect]
     Active Substance: FRUQUINTINIB
     Indication: Rectal cancer
     Dosage: PO QD D1-21
     Route: 048
     Dates: start: 20250621, end: 20250711

REACTIONS (2)
  - Myelosuppression [Not Recovered/Not Resolved]
  - Off label use [Unknown]

NARRATIVE: CASE EVENT DATE: 20250712
